FAERS Safety Report 20033989 (Version 1)
Quarter: 2021Q4

REPORT INFORMATION
  Report Type: Spontaneous
  Country: GB (occurrence: GB)
  Receive Date: 20211104
  Receipt Date: 20211104
  Transmission Date: 20220303
  Serious: Yes (Other)
  Sender: FDA-Public Use
  Company Number: GB-MYLANLABS-2021M1080717

PATIENT
  Weight: 3 kg

DRUGS (2)
  1. FLECAINIDE [Suspect]
     Active Substance: FLECAINIDE
     Indication: Tachycardia foetal
     Dosage: UNK, 5 DAYS
     Route: 064
  2. METOPROLOL [Suspect]
     Active Substance: METOPROLOL
     Indication: Tachycardia foetal
     Dosage: 50 MILLIGRAM, TID
     Route: 064

REACTIONS (2)
  - Drug ineffective [Unknown]
  - Foetal exposure during pregnancy [Recovered/Resolved]
